FAERS Safety Report 17776506 (Version 3)
Quarter: 2020Q4

REPORT INFORMATION
  Report Type: Report from Study
  Country: US (occurrence: US)
  Receive Date: 20200513
  Receipt Date: 20201006
  Transmission Date: 20210113
  Serious: No
  Sender: FDA-Public Use
  Company Number: US-ACADIA PHARMACEUTICALS INC.-ACA-2019-012777

PATIENT
  Sex: Female

DRUGS (1)
  1. NUPLAZID [Suspect]
     Active Substance: PIMAVANSERIN TARTRATE
     Indication: PARKINSON^S DISEASE
     Dosage: 34 MG, QD
     Route: 048
     Dates: start: 20181212

REACTIONS (7)
  - Hallucination [Not Recovered/Not Resolved]
  - Pain in extremity [Unknown]
  - Skin exfoliation [Unknown]
  - Malaise [Unknown]
  - Drug ineffective [Unknown]
  - Adverse drug reaction [Unknown]
  - Dry skin [Not Recovered/Not Resolved]
